FAERS Safety Report 4665423-4 (Version None)
Quarter: 2005Q2

REPORT INFORMATION
  Report Type: 
  Country: None (occurrence: None)
  Receive Date: 20050518
  Receipt Date: 20050518
  Transmission Date: 20051028
  Serious: Yes (Other)
  Sender: FDA-Public Use
  Company Number: None

PATIENT
  Sex: Male

DRUGS (3)
  1. ARIPIPRAZOLE  15 MG [Suspect]
     Indication: SCHIZOPHRENIA
     Dosage: 15 MG  HS ORAL
     Route: 048
     Dates: start: 20050112, end: 20050125
  2. IBUPROFEN [Concomitant]
  3. OLANZAPINE [Concomitant]

REACTIONS (1)
  - INSOMNIA [None]
